FAERS Safety Report 24587687 (Version 2)
Quarter: 2024Q4

REPORT INFORMATION
  Report Type: Spontaneous
  Country: CN (occurrence: CN)
  Receive Date: 20241107
  Receipt Date: 20241112
  Transmission Date: 20250115
  Serious: Yes (Hospitalization, Other)
  Sender: PAREXEL
  Company Number: CN-SHANGHAI JUNSHI BIOSCIENCES CO., LTD.-CN2024011849

PATIENT

DRUGS (2)
  1. TORIPALIMAB [Suspect]
     Active Substance: TORIPALIMAB
     Indication: Small intestine carcinoma
     Dosage: 240 MG
     Route: 041
     Dates: start: 20240926, end: 20240926
  2. FRUQUINTINIB [Concomitant]
     Active Substance: FRUQUINTINIB
     Indication: Small intestine carcinoma
     Dosage: UNK
     Route: 041
     Dates: start: 20240920

REACTIONS (10)
  - Ascites [Not Recovered/Not Resolved]
  - Sepsis [Unknown]
  - Flatulence [Not Recovered/Not Resolved]
  - Platelet count decreased [Not Recovered/Not Resolved]
  - Myalgia [Not Recovered/Not Resolved]
  - Pain in extremity [Not Recovered/Not Resolved]
  - Anaemia [Not Recovered/Not Resolved]
  - Alanine aminotransferase increased [Not Recovered/Not Resolved]
  - Proteinuria [Not Recovered/Not Resolved]
  - Off label use [Unknown]

NARRATIVE: CASE EVENT DATE: 20240926
